FAERS Safety Report 6541314-9 (Version None)
Quarter: 2010Q1

REPORT INFORMATION
  Report Type: 
  Country: None (occurrence: None)
  Receive Date: 20100118
  Receipt Date: 20100106
  Transmission Date: 20100710
  Serious: Yes (Hospitalization, Other)
  Sender: FDA-Public Use
  Company Number: JP-ELI_LILLY_AND_COMPANY-JP201001001713

PATIENT
  Age: 35 Year
  Sex: Male

DRUGS (5)
  1. ZYPREXA [Suspect]
     Indication: BIPOLAR I DISORDER
     Route: 048
  2. ZYPREXA [Suspect]
     Dosage: 2.5 MG, DAILY (1/D)
     Route: 048
  3. SULPIRIDE [Concomitant]
     Indication: BIPOLAR I DISORDER
     Route: 048
  4. LITHIUM [Concomitant]
     Indication: BIPOLAR I DISORDER
     Route: 048
  5. CARBAMAZEPINE [Concomitant]
     Indication: BIPOLAR I DISORDER
     Route: 048

REACTIONS (3)
  - DYSKINESIA [None]
  - NEUROLEPTIC MALIGNANT SYNDROME [None]
  - OFF LABEL USE [None]
